FAERS Safety Report 6439706-1 (Version None)
Quarter: 2009Q4

REPORT INFORMATION
  Report Type: 
  Country: None (occurrence: None)
  Receive Date: 20091113
  Receipt Date: 20090304
  Transmission Date: 20100525
  Serious: Yes (Other)
  Sender: FDA-Public Use
  Company Number: US-BAYER-200827427NA

PATIENT
  Age: 59 Year
  Sex: Female
  Weight: 109 kg

DRUGS (25)
  1. MAGNEVIST [Suspect]
     Indication: NUCLEAR MAGNETIC RESONANCE IMAGING
     Dosage: AS USED: 20 ML/KG
     Dates: start: 19980824, end: 19980824
  2. OMNISCAN [Suspect]
     Indication: NUCLEAR MAGNETIC RESONANCE IMAGING
  3. OPTIMARK [Suspect]
     Indication: NUCLEAR MAGNETIC RESONANCE IMAGING
  4. MULTIHANCE [Suspect]
     Indication: NUCLEAR MAGNETIC RESONANCE IMAGING
     Dosage: TOTAL DAILY DOSE: 30 ML
     Route: 042
     Dates: start: 20050707, end: 20050707
  5. PROHANCE [Suspect]
     Indication: NUCLEAR MAGNETIC RESONANCE IMAGING
  6. UNSPECIFIED GADOLINIUM [Suspect]
     Indication: NUCLEAR MAGNETIC RESONANCE IMAGING
     Dates: start: 19980706, end: 19980706
  7. UNSPECIFIED GADOLINIUM [Suspect]
     Dosage: STATED BY PATIENT IN A PHYSICIAN'S NOTE; NO RADIOLOGY REPORT; NOT STATED IN PFS
     Dates: start: 20070801, end: 20070801
  8. UNSPECIFIED GADOLINIUM [Suspect]
     Dates: start: 20020820, end: 20020820
  9. EPOGEN [Concomitant]
  10. IRON SUPPLEMENTS [Concomitant]
  11. EVISTA [Concomitant]
  12. CELLCEPT [Concomitant]
     Indication: PROPHYLAXIS AGAINST TRANSPLANT REJECTION
  13. CILOSTAZOL [Concomitant]
  14. BABY ASPIRIN [Concomitant]
  15. NEPHROCAPS [Concomitant]
  16. INSULIN [Concomitant]
  17. PREDNISONE [Concomitant]
  18. LEVOTHYROXINE SODIUM [Concomitant]
  19. PROGRAF [Concomitant]
  20. SENSIPAR [Concomitant]
  21. RENAGEL [Concomitant]
  22. ZEMPLAR [Concomitant]
  23. PHOSLO [Concomitant]
  24. PLAVIX [Concomitant]
  25. VISIPAQUE [Concomitant]
     Indication: AORTOGRAM
     Dosage: AS USED: 135.1 ML
     Dates: start: 20050616, end: 20050616

REACTIONS (14)
  - ANXIETY [None]
  - ASTHENIA [None]
  - EMOTIONAL DISTRESS [None]
  - FIBROSIS [None]
  - GRIEF REACTION [None]
  - JOINT RANGE OF MOTION DECREASED [None]
  - MOBILITY DECREASED [None]
  - MUSCLE TIGHTNESS [None]
  - MUSCULOSKELETAL STIFFNESS [None]
  - NEPHROGENIC SYSTEMIC FIBROSIS [None]
  - OEDEMA PERIPHERAL [None]
  - PAIN [None]
  - QUALITY OF LIFE DECREASED [None]
  - SKIN TIGHTNESS [None]
